FAERS Safety Report 16907654 (Version 1)
Quarter: 2019Q4

REPORT INFORMATION
  Report Type: Spontaneous
  Country: US (occurrence: US)
  Receive Date: 20191011
  Receipt Date: 20191011
  Transmission Date: 20200122
  Serious: Yes (Other)
  Sender: FDA-Public Use
  Company Number: US-BRISTOL-MYERS SQUIBB COMPANY-BMS-2019-095963

PATIENT
  Sex: Male
  Weight: 79.37 kg

DRUGS (1)
  1. OPDIVO [Suspect]
     Active Substance: NIVOLUMAB
     Indication: METASTATIC MALIGNANT MELANOMA
     Dosage: 240 MILLIGRAM, Q2WK
     Route: 042

REACTIONS (8)
  - Insomnia [Unknown]
  - Colitis [Unknown]
  - Pneumonitis [Unknown]
  - Tremor [Unknown]
  - Weight fluctuation [Unknown]
  - Constipation [Unknown]
  - Diarrhoea [Unknown]
  - Arthritis [Unknown]
